FAERS Safety Report 8072127-7 (Version None)
Quarter: 2011Q4

REPORT INFORMATION
  Report Type: 
  Country: None (occurrence: None)
  Receive Date: 20111221
  Receipt Date: 20110726
  Transmission Date: 20120403
  Serious: Yes (Hospitalization)
  Sender: FDA-Public Use
  Company Number: PHHY2011US68202

PATIENT
  Sex: Male

DRUGS (2)
  1. LACTULOSE [Concomitant]
  2. EXJADE [Suspect]
     Dosage: ORAL
     Route: 048

REACTIONS (2)
  - ANXIETY [None]
  - DIARRHOEA [None]
